FAERS Safety Report 18753297 (Version 2)
Quarter: 2021Q2

REPORT INFORMATION
  Report Type: Report from Study
  Country: US (occurrence: US)
  Receive Date: 20210118
  Receipt Date: 20210422
  Transmission Date: 20210717
  Serious: Yes (Hospitalization, Other)
  Sender: FDA-Public Use
  Company Number: US-ASTELLAS-2020US012917

PATIENT
  Age: 39 Year
  Sex: Female

DRUGS (7)
  1. VITAMIN D [ERGOCALCIFEROL] [Concomitant]
     Active Substance: ERGOCALCIFEROL
     Indication: PRODUCT USED FOR UNKNOWN INDICATION
     Route: 065
  2. TRAZODONE [Concomitant]
     Active Substance: TRAZODONE HYDROCHLORIDE
     Indication: SLEEP DISORDER
     Dosage: UNK UNK, AS NEEDED
     Route: 065
  3. JAKAFI [Concomitant]
     Active Substance: RUXOLITINIB
     Indication: ACUTE MYELOID LEUKAEMIA
     Dosage: UNK UNK, UNKNOWN FREQ.
     Route: 065
  4. FOLIC ACID. [Concomitant]
     Active Substance: FOLIC ACID
     Indication: PRODUCT USED FOR UNKNOWN INDICATION
     Route: 065
  5. ASP2215 [Suspect]
     Active Substance: GILTERITINIB
     Route: 048
     Dates: start: 20201216
  6. ASP2215 [Suspect]
     Active Substance: GILTERITINIB
     Indication: ACUTE MYELOID LEUKAEMIA
     Route: 048
     Dates: start: 20200323
  7. ASP2215 [Suspect]
     Active Substance: GILTERITINIB
     Dosage: UNK UNK, ONCE DAILY
     Route: 048
     Dates: end: 20200928

REACTIONS (19)
  - Sinusitis [Unknown]
  - Constipation [Unknown]
  - Weight increased [Unknown]
  - Blood creatine phosphokinase decreased [Unknown]
  - Fatigue [Unknown]
  - Underdose [Unknown]
  - Oedema [Unknown]
  - Asthenia [Unknown]
  - Myalgia [Unknown]
  - Flatulence [Unknown]
  - Gastric ulcer [Unknown]
  - Vomiting [Unknown]
  - Decreased activity [Unknown]
  - Diarrhoea [Unknown]
  - Large intestinal ulcer [Unknown]
  - Graft versus host disease in gastrointestinal tract [Unknown]
  - Nausea [Unknown]
  - Abdominal distension [Unknown]
  - Affect lability [Not Recovered/Not Resolved]

NARRATIVE: CASE EVENT DATE: 20200323
